FAERS Safety Report 4355933-1 (Version None)
Quarter: 2004Q2

REPORT INFORMATION
  Report Type: 
  Country: None (occurrence: None)
  Receive Date: 20040505
  Receipt Date: 20040424
  Transmission Date: 20050107
  Serious: Yes (Hospitalization)
  Sender: FDA-Public Use
  Company Number: 2004207981JP

PATIENT
  Age: 16 Year
  Sex: Male
  Weight: 46.5 kg

DRUGS (6)
  1. GENOTROPIN [Suspect]
     Indication: HYPOPITUITARISM
     Dosage: SEE IMAGE
     Dates: start: 20030401, end: 20030728
  2. GENOTROPIN [Suspect]
     Indication: HYPOPITUITARISM
     Dosage: SEE IMAGE
     Dates: start: 20010501
  3. GENOTROPIN [Suspect]
     Indication: HYPOPITUITARISM
     Dosage: SEE IMAGE
     Dates: start: 20020401
  4. DESMOPRESSIN (DESMOPRESSIN) [Suspect]
     Indication: DIABETES INSIPIDUS
     Dosage: 0.025 ML, BID, NASAL
     Route: 045
  5. LEVOTHYROXINE SODIUM [Suspect]
     Indication: HYPOTHYROIDISM
     Dosage: 50 MG, QD, ORAL
     Route: 048
  6. CORTRIL [Suspect]
     Indication: HYPOPITUITARISM
     Dosage: BID, ORAL
     Route: 048

REACTIONS (2)
  - GERM CELL CANCER [None]
  - NEOPLASM RECURRENCE [None]
